FAERS Safety Report 4665659-2 (Version None)
Quarter: 2005Q2

REPORT INFORMATION
  Report Type: 
  Country: None (occurrence: None)
  Receive Date: 20050519
  Receipt Date: 20050511
  Transmission Date: 20051028
  Serious: Yes (Hospitalization, Other)
  Sender: FDA-Public Use
  Company Number: CZ-KINGPHARMUSA00001-K200500615

PATIENT
  Age: 15 Year
  Sex: Male

DRUGS (6)
  1. ALTACE [Suspect]
     Indication: HYPERTENSION
     Dosage: 2.5 MG, QD
     Dates: start: 20050125, end: 20050315
  2. FUROSEMIDE [Concomitant]
     Indication: HYPERTENSION
     Dosage: 40 MG, QD
     Route: 048
     Dates: start: 20040701
  3. EPOGEN [Concomitant]
     Indication: NEPHROGENIC ANAEMIA
     Dosage: 2000 IU, QW
     Route: 058
     Dates: start: 20030101
  4. VITAMIN D [Concomitant]
     Indication: RENAL OSTEODYSTROPHY
     Dosage: .25 UG, QD
     Route: 048
     Dates: start: 20020101
  5. ALLOPURINOL [Concomitant]
     Indication: HYPERURICAEMIA
     Dosage: 400 MG, QD
     Route: 048
     Dates: start: 20020101
  6. BICARBONATE [Concomitant]
     Indication: METABOLIC ACIDOSIS
     Dosage: 5000 MG, QD
     Route: 048
     Dates: start: 20030101

REACTIONS (3)
  - GLOMERULAR FILTRATION RATE DECREASED [None]
  - HYPERKALAEMIA [None]
  - RENAL FAILURE CHRONIC [None]
